FAERS Safety Report 9869253 (Version 1)
Quarter: 2014Q1

REPORT INFORMATION
  Report Type: Spontaneous
  Country: US (occurrence: US)
  Receive Date: 20140205
  Receipt Date: 20140205
  Transmission Date: 20141002
  Serious: Yes (Hospitalization, Other)
  Sender: FDA-Public Use
  Company Number: PHEH2014US002230

PATIENT
  Age: 48 Year
  Sex: Male

DRUGS (4)
  1. CLOZARIL [Suspect]
     Dosage: UNK
     Dates: end: 20131011
  2. CLOZARIL [Suspect]
     Dosage: 25 MG, UNK
     Dates: start: 20131118
  3. CLOZARIL [Suspect]
     Dosage: 75 MG, UNK
  4. CLOZARIL [Suspect]
     Dosage: 100 MG, UNK

REACTIONS (3)
  - Psychotic disorder [Unknown]
  - Agranulocytosis [Unknown]
  - Neutrophil count decreased [Recovered/Resolved]
